FAERS Safety Report 12349731 (Version 2)
Quarter: 2016Q2

REPORT INFORMATION
  Report Type: Report from Study
  Country: MX (occurrence: MX)
  Receive Date: 20160510
  Receipt Date: 20160610
  Transmission Date: 20160815
  Serious: Yes (Hospitalization)
  Sender: FDA-Public Use
  Company Number: MX-ORION CORPORATION ORION PHARMA-ENTC2016-0145

PATIENT
  Sex: Female

DRUGS (4)
  1. STALEVO [Suspect]
     Active Substance: CARBIDOPA\ENTACAPONE\LEVODOPA
     Dosage: STRENGTH: 50/12.5/200 MG
     Route: 065
  2. STALEVO [Suspect]
     Active Substance: CARBIDOPA\ENTACAPONE\LEVODOPA
     Indication: PARKINSON^S DISEASE
     Dosage: STRENGTH: 100/25/200 MG
     Route: 065
  3. SIFROL [Concomitant]
     Active Substance: PRAMIPEXOLE
     Route: 065
  4. PK-MERZ [Concomitant]
     Active Substance: AMANTADINE
     Route: 065

REACTIONS (10)
  - Decreased appetite [Recovered/Resolved]
  - Overweight [Unknown]
  - Wrong technique in product usage process [Unknown]
  - Dyskinesia [Unknown]
  - Gastrooesophageal reflux disease [Not Recovered/Not Resolved]
  - Visual impairment [Unknown]
  - Dysphonia [Not Recovered/Not Resolved]
  - Weight decreased [Recovering/Resolving]
  - Dry throat [Unknown]
  - Nausea [Unknown]
